FAERS Safety Report 13725421 (Version 1)
Quarter: 2017Q3

REPORT INFORMATION
  Report Type: Spontaneous
  Country: US (occurrence: US)
  Receive Date: 20170707
  Receipt Date: 20170707
  Transmission Date: 20171127
  Serious: No
  Sender: FDA-Public Use
  Company Number: US-BAYER-2017-130262

PATIENT
  Age: 79 Year
  Sex: Female
  Weight: 63 kg

DRUGS (7)
  1. DIGOXIN [DIGOXIN] [Concomitant]
     Active Substance: DIGOXIN
     Dosage: UNK
  2. ATORVASTATIN [Concomitant]
     Active Substance: ATORVASTATIN
     Dosage: UNK
  3. RAMIPRIL. [Concomitant]
     Active Substance: RAMIPRIL
     Dosage: UNK
  4. APIXABAN [Concomitant]
     Active Substance: APIXABAN
     Dosage: UNK
  5. TOPROL XL [Concomitant]
     Active Substance: METOPROLOL SUCCINATE
     Dosage: UNK
  6. CLARITIN [Suspect]
     Active Substance: LORATADINE
     Indication: MULTIPLE ALLERGIES
     Dosage: UNK
     Route: 048
     Dates: start: 20170704, end: 20170705
  7. CLARITIN [Suspect]
     Active Substance: LORATADINE
     Indication: NASOPHARYNGITIS

REACTIONS (3)
  - Diarrhoea [Not Recovered/Not Resolved]
  - Hyperhidrosis [Unknown]
  - Nausea [Unknown]

NARRATIVE: CASE EVENT DATE: 20170705
